FAERS Safety Report 6128073-9 (Version None)
Quarter: 2009Q1

REPORT INFORMATION
  Report Type: 
  Country: None (occurrence: None)
  Receive Date: 20090320
  Receipt Date: 20090320
  Transmission Date: 20090719
  Serious: No
  Sender: FDA-Public Use
  Company Number: None

PATIENT
  Sex: Female

DRUGS (7)
  1. AREDIA [Suspect]
     Indication: BREAST CANCER METASTATIC
     Dosage: 90 MG MONTHLY IV  (DATES OF USE: MID 2000 - MID 2003)
     Route: 042
  2. ZOMETA [Suspect]
     Indication: BREAST CANCER METASTATIC
     Dosage: 4 MG MONTHLY IV (DATES OF USE: MID 2003 - FALL 2007)
     Route: 042
  3. TAMOXIFEN CITRATE [Concomitant]
  4. FEMARA [Concomitant]
  5. NAVELBINE [Concomitant]
  6. AROMASIN [Concomitant]
  7. AVASTIN [Concomitant]

REACTIONS (1)
  - BONE DISORDER [None]
